FAERS Safety Report 16158558 (Version 4)
Quarter: 2019Q2

REPORT INFORMATION
  Report Type: Report from Study
  Country: US (occurrence: US)
  Receive Date: 20190404
  Receipt Date: 20190509
  Transmission Date: 20190711
  Serious: Yes (Hospitalization)
  Sender: FDA-Public Use
  Company Number: US-GILEAD-2019-0398047

PATIENT
  Age: 40 Year
  Sex: Male

DRUGS (7)
  1. MYCOPHENOLATE [Concomitant]
     Active Substance: MYCOPHENOLIC ACID
  2. SILDENAFIL. [Concomitant]
     Active Substance: SILDENAFIL
  3. VELETRI [Suspect]
     Active Substance: EPOPROSTENOL
     Indication: PRODUCT USED FOR UNKNOWN INDICATION
     Dosage: UNK
     Route: 065
     Dates: end: 20190328
  4. AMBRISENTAN [Suspect]
     Active Substance: AMBRISENTAN
     Indication: PRODUCT USED FOR UNKNOWN INDICATION
     Dosage: 10 MG, QD
     Route: 048
     Dates: start: 20181220
  5. ADCIRCA [Concomitant]
     Active Substance: TADALAFIL
  6. ALLOPURINOL. [Concomitant]
     Active Substance: ALLOPURINOL
  7. COLCHICINE. [Concomitant]
     Active Substance: COLCHICINE

REACTIONS (17)
  - Contusion [Not Recovered/Not Resolved]
  - Asthenia [Not Recovered/Not Resolved]
  - Dyspnoea [Unknown]
  - Hypersensitivity [Not Recovered/Not Resolved]
  - Anxiety [Not Recovered/Not Resolved]
  - Malaise [Not Recovered/Not Resolved]
  - Gout [Not Recovered/Not Resolved]
  - Body temperature fluctuation [Not Recovered/Not Resolved]
  - Urticaria [Unknown]
  - Nausea [Not Recovered/Not Resolved]
  - Hypotension [Not Recovered/Not Resolved]
  - Pallor [Not Recovered/Not Resolved]
  - Flushing [Not Recovered/Not Resolved]
  - Product use issue [Recovered/Resolved]
  - Feeling abnormal [Not Recovered/Not Resolved]
  - Rash [Not Recovered/Not Resolved]
  - Skin exfoliation [Unknown]

NARRATIVE: CASE EVENT DATE: 20190401
